FAERS Safety Report 12784397 (Version 1)
Quarter: 2016Q3

REPORT INFORMATION
  Report Type: Spontaneous
  Country: DE (occurrence: DE)
  Receive Date: 20160927
  Receipt Date: 20160927
  Transmission Date: 20161109
  Serious: Yes (Other)
  Sender: FDA-Public Use
  Company Number: DE-BEH-SAGL-LD/01/21/GFR

PATIENT
  Age: 56 Year
  Sex: Male
  Weight: 118 kg

DRUGS (1)
  1. SANDOGLOBULIN [Suspect]
     Active Substance: HUMAN IMMUNOGLOBULIN G
     Indication: HYPOGAMMAGLOBULINAEMIA
     Dosage: DAILY DOSE QUANTITY: 10, DAILY DOSE UNIT: G
     Route: 042
     Dates: start: 20010118, end: 20010118

REACTIONS (2)
  - Anaphylactoid reaction [Recovered/Resolved]
  - Chills [Recovered/Resolved]

NARRATIVE: CASE EVENT DATE: 20010118
